FAERS Safety Report 10154925 (Version 2)
Quarter: 2014Q2

REPORT INFORMATION
  Report Type: Report from Study
  Country: US (occurrence: US)
  Receive Date: 20140506
  Receipt Date: 20140609
  Transmission Date: 20141212
  Serious: Yes (Hospitalization)
  Sender: FDA-Public Use
  Company Number: US-TEVA-479385USA

PATIENT
  Age: 8 Month
  Sex: Male
  Weight: 7.67 kg

DRUGS (14)
  1. LESTAURTINIB [Suspect]
     Dates: start: 20131210
  2. METHOTREXATE [Suspect]
     Route: 037
     Dates: start: 20131210
  3. CLINDAMYCIN [Suspect]
  4. CYTARABINE [Suspect]
     Route: 037
     Dates: start: 20131210
  5. HYDROCORTISONE [Suspect]
     Route: 037
     Dates: start: 20131210
  6. ZOSYN [Suspect]
  7. CEFAZOLIN [Suspect]
  8. GENTAMICIN [Suspect]
  9. LANSOPRAZOLE [Concomitant]
  10. LORAZEPAM [Concomitant]
  11. METOCLOPRAMIDE [Concomitant]
  12. METRONIDAZOLE [Concomitant]
  13. ONDANSETRON [Concomitant]
  14. RANITIDINE [Concomitant]

REACTIONS (4)
  - Dermatitis diaper [Recovered/Resolved]
  - Penile pain [Recovered/Resolved]
  - Penile swelling [Recovered/Resolved]
  - Clostridium difficile colitis [Unknown]
